FAERS Safety Report 19719803 (Version 2)
Quarter: 2021Q3

REPORT INFORMATION
  Report Type: Spontaneous
  Country: DE (occurrence: DE)
  Receive Date: 20210818
  Receipt Date: 20210907
  Transmission Date: 20211014
  Serious: Yes (Hospitalization, Other)
  Sender: FDA-Public Use
  Company Number: DE-MYLANLABS-2021M1051957

PATIENT
  Age: 75 Year
  Sex: Female

DRUGS (12)
  1. RASAGILINE MESILATE [Interacting]
     Active Substance: RASAGILINE MESYLATE
     Indication: PRODUCT USED FOR UNKNOWN INDICATION
     Dosage: 1 MG, 1?0?0?0, TABLETTEN
     Route: 065
  2. DULOXETINE. [Suspect]
     Active Substance: DULOXETINE
     Indication: PRODUCT USED FOR UNKNOWN INDICATION
     Dosage: 30 MG, 1?0?0?0, CAPSULE
     Route: 065
  3. CARBIDOPA/LEVODOPA [Concomitant]
     Active Substance: CARBIDOPA\LEVODOPA
     Dosage: 25|100 MG, 1?1?1?1, TABLETTEN
  4. ROTIGOTINA [Concomitant]
     Active Substance: ROTIGOTINE
     Dosage: 4 MG/D, 1?0?0?0, PFLASTER TRANSDERMAL
     Route: 062
  5. CINNARIZIN DIMENHYDRINAT [Concomitant]
     Dosage: 20/40 MG, 1?1?1?0, TABLETTEN
     Route: 065
  6. VALSARTAN. [Concomitant]
     Active Substance: VALSARTAN
     Dosage: 80 MG, 0.5?0?2?0, TABLETTEN
  7. ROTIGOTINA [Concomitant]
     Active Substance: ROTIGOTINE
     Dosage: 8 MG/D, 1?0?0?0, PFLASTER TRANSDERMAL
     Route: 062
  8. PANTOPRAZOL                        /01263201/ [Concomitant]
     Active Substance: PANTOPRAZOLE
     Dosage: 40 MG, BEDARF, TABLETTEN
     Route: 065
  9. RIVASTIGMINE. [Suspect]
     Active Substance: RIVASTIGMINE
     Indication: PRODUCT USED FOR UNKNOWN INDICATION
     Dosage: 9.5 MG, 1?0?0?0
     Route: 065
  10. TROSPIUM [Concomitant]
     Active Substance: TROSPIUM
     Dosage: 30 MG, 0.5?0?0.5?0, TABLETTEN
  11. METOPROLOL. [Concomitant]
     Active Substance: METOPROLOL
     Dosage: 23.75 MG, 1?0?0?0, RETARD?TABLETTEN
     Route: 065
  12. TAPENTADOL [Interacting]
     Active Substance: TAPENTADOL
     Indication: PRODUCT USED FOR UNKNOWN INDICATION
     Dosage: 50 MG, 1?0?1?0, RETARD?TABLETTEN

REACTIONS (8)
  - Asthenia [Unknown]
  - Tremor [Unknown]
  - Haematemesis [Unknown]
  - Pallor [Unknown]
  - Hypertension [Unknown]
  - Hypertensive crisis [Unknown]
  - Product prescribing error [Unknown]
  - Labelled drug-drug interaction medication error [Unknown]
